FAERS Safety Report 7059002-1 (Version None)
Quarter: 2010Q4

REPORT INFORMATION
  Report Type: 
  Country: None (occurrence: None)
  Receive Date: 20101025
  Receipt Date: 20101015
  Transmission Date: 20110411
  Serious: Yes (Hospitalization)
  Sender: FDA-Public Use
  Company Number: US-BIOGENIDEC-2010BI036125

PATIENT
  Age: 54 Year
  Sex: Female
  Weight: 86 kg

DRUGS (3)
  1. TYSABRI [Suspect]
     Indication: MULTIPLE SCLEROSIS
     Route: 042
     Dates: start: 20080306
  2. NEURONTIN [Concomitant]
     Indication: PAIN
  3. CYMBALTA [Concomitant]
     Indication: DEPRESSION

REACTIONS (7)
  - ANXIETY [None]
  - ARTHRALGIA [None]
  - BLOOD CHOLESTEROL INCREASED [None]
  - CHONDROPATHY [None]
  - HYPERTENSION [None]
  - MULTIPLE SCLEROSIS RELAPSE [None]
  - NOCTURIA [None]
